FAERS Safety Report 7953074-5 (Version None)
Quarter: 2011Q4

REPORT INFORMATION
  Report Type: 
  Country: None (occurrence: None)
  Receive Date: 20111201
  Receipt Date: 20111118
  Transmission Date: 20120403
  Serious: Yes (Death, Hospitalization)
  Sender: FDA-Public Use
  Company Number: PHHO2011IN18292

PATIENT
  Sex: Male

DRUGS (8)
  1. MYCOPHENOLATE MOFETIL [Suspect]
     Indication: RENAL TRANSPLANT
     Dosage: 500 MG, UNK
     Dates: start: 20111010, end: 20111024
  2. PANTOCID [Concomitant]
     Dosage: UNK
     Dates: start: 20070617
  3. ATENOLOL [Concomitant]
     Dosage: UNK
     Dates: start: 20070617, end: 20111010
  4. FOLVITE [Concomitant]
     Dosage: UNK
     Dates: start: 20070617
  5. CYCLOSPORINE [Suspect]
     Indication: RENAL TRANSPLANT
     Dosage: 75 MG, QD
     Route: 048
     Dates: start: 20070605
  6. ARKAMIN [Concomitant]
     Dosage: UNK
     Dates: start: 20070627, end: 20111010
  7. DILZEM [Concomitant]
     Dosage: UNK
     Dates: start: 20070617
  8. DEFLAZACORT [Concomitant]
     Dosage: UNK
     Dates: start: 20071227

REACTIONS (6)
  - CYTOMEGALOVIRUS INFECTION [None]
  - CARDIAC ARREST [None]
  - SEPTIC SHOCK [None]
  - WEIGHT DECREASED [None]
  - DIARRHOEA [None]
  - PNEUMONIA [None]
